FAERS Safety Report 9330296 (Version 1)
Quarter: 2013Q2

REPORT INFORMATION
  Report Type: Spontaneous
  Country: FI (occurrence: FI)
  Receive Date: 20130605
  Receipt Date: 20130605
  Transmission Date: 20140414
  Serious: Yes (Other)
  Sender: FDA-Public Use
  Company Number: FI-ROCHE-1231741

PATIENT
  Age: 9 Year
  Sex: Female

DRUGS (4)
  1. CEFTRIAXONE [Suspect]
     Indication: SEPSIS
     Route: 042
  2. QUININE HYDROCHLORIDE [Concomitant]
     Indication: MALARIA
     Route: 042
  3. DOXYCYCLIN [Concomitant]
     Indication: MALARIA
     Route: 042
  4. NORADRENALINE [Concomitant]
     Route: 042

REACTIONS (1)
  - Liver function test abnormal [Recovered/Resolved]
